FAERS Safety Report 4495259-9 (Version None)
Quarter: 2004Q4

REPORT INFORMATION
  Report Type: 
  Country: None (occurrence: None)
  Receive Date: 20041108
  Receipt Date: 20040809
  Transmission Date: 20050328
  Serious: No
  Sender: FDA-Public Use
  Company Number: US-GLAXOSMITHKLINE-A0521531A

PATIENT
  Age: 57 Year
  Sex: Female

DRUGS (15)
  1. AVANDAMET [Suspect]
     Dosage: 1TAB TWICE PER DAY
     Route: 048
     Dates: start: 20040714
  2. ACCUPRIL [Concomitant]
  3. THYROID TAB [Concomitant]
  4. ST. JOHNS WORT [Concomitant]
  5. MULTI-VITAMIN [Concomitant]
  6. CALCIUM [Concomitant]
  7. FOLIC ACID [Concomitant]
  8. GRAPE SEED EXTRACT [Concomitant]
  9. ZINC [Concomitant]
  10. RED YEAST RICE [Concomitant]
  11. VITAMIN C [Concomitant]
  12. VITAMIN E [Concomitant]
  13. OMEGA 3 FATTY ACIDS [Concomitant]
  14. VITAMIN B6 [Concomitant]
  15. FLAX SEED OIL [Concomitant]

REACTIONS (2)
  - DIARRHOEA [None]
  - OEDEMA PERIPHERAL [None]
